FAERS Safety Report 22664284 (Version 1)
Quarter: 2023Q2

REPORT INFORMATION
  Report Type: Spontaneous
  Country: US (occurrence: None)
  Receive Date: 20230630
  Receipt Date: 20230630
  Transmission Date: 20230722
  Serious: No
  Sender: FDA-Public Use
  Company Number: None

PATIENT
  Age: 42 Year
  Sex: Female
  Weight: 63 kg

DRUGS (1)
  1. MONSELS SOLUTION [Suspect]
     Active Substance: FERRIC SUBSULFATE
     Indication: Haemorrhage
     Route: 067
     Dates: start: 20230131, end: 20230131

REACTIONS (2)
  - Cervix disorder [None]
  - Application site vesicles [None]

NARRATIVE: CASE EVENT DATE: 20230131
